FAERS Safety Report 11871013 (Version 1)
Quarter: 2015Q4

REPORT INFORMATION
  Report Type: Spontaneous
  Country: US (occurrence: None)
  Receive Date: 20151224
  Receipt Date: 20151224
  Transmission Date: 20160305
  Serious: No
  Sender: FDA-Public Use
  Company Number: None

PATIENT
  Age: 56 Year
  Sex: Male

DRUGS (1)
  1. POTASSIUM CHLORIDE. [Suspect]
     Active Substance: POTASSIUM CHLORIDE
     Indication: HYPOKALAEMIA
     Dosage: 40 MEQ CONTINUOUS IV
     Route: 042
     Dates: start: 20150804, end: 20150807

REACTIONS (3)
  - Bradycardia [None]
  - Product quality issue [None]
  - Device malfunction [None]

NARRATIVE: CASE EVENT DATE: 20150807
